FAERS Safety Report 5730389-2 (Version None)
Quarter: 2008Q2

REPORT INFORMATION
  Report Type: 
  Country: None (occurrence: None)
  Receive Date: 20080505
  Receipt Date: 20080505
  Transmission Date: 20081010
  Serious: Yes (Life-Threatening, Hospitalization)
  Sender: FDA-Public Use
  Company Number: None

PATIENT
  Age: 43 Year
  Sex: Female
  Weight: 95.2554 kg

DRUGS (1)
  1. REMICADE [Suspect]
     Indication: RHEUMATOID ARTHRITIS
     Dosage: 3 IV DOSES
     Dates: start: 20070518, end: 20070624

REACTIONS (6)
  - ASPIRATION [None]
  - BACTERIAL INFECTION [None]
  - BRONCHOSPASM [None]
  - LUNG DISORDER [None]
  - PNEUMONIA [None]
  - PNEUMONITIS [None]
